FAERS Safety Report 12255149 (Version 2)
Quarter: 2016Q2

REPORT INFORMATION
  Report Type: Spontaneous
  Country: CA (occurrence: CA)
  Receive Date: 20160411
  Receipt Date: 20160527
  Transmission Date: 20160815
  Serious: Yes (Other)
  Sender: FDA-Public Use
  Company Number: CA-ROCHE-1739524

PATIENT
  Age: 30 Year
  Sex: Female

DRUGS (14)
  1. OPTIMIZETTE [Concomitant]
     Active Substance: DESOGESTREL
     Indication: PRODUCT USED FOR UNKNOWN INDICATION
     Route: 065
  2. XOLAIR [Suspect]
     Active Substance: OMALIZUMAB
     Dosage: POWDER AND SOLVENT FOR SOLUTION FOR INJECTION
     Route: 058
     Dates: start: 20160404
  3. XOLAIR [Suspect]
     Active Substance: OMALIZUMAB
     Dosage: POWDER AND SOLVENT FOR SOLUTION FOR INJECTION
     Route: 058
     Dates: start: 20160504
  4. XOLAIR [Suspect]
     Active Substance: OMALIZUMAB
     Indication: ASTHMA
     Dosage: POWDER AND SOLVENT FOR SOLUTION FOR INJECTION
     Route: 058
     Dates: start: 201412, end: 20150830
  5. DESOGESTREL [Concomitant]
     Active Substance: DESOGESTREL
     Indication: PRODUCT USED FOR UNKNOWN INDICATION
     Route: 065
  6. XOLAIR [Suspect]
     Active Substance: OMALIZUMAB
     Dosage: POWDER AND SOLVENT FOR SOLUTION FOR INJECTION
     Route: 058
     Dates: start: 20151102
  7. XOLAIR [Suspect]
     Active Substance: OMALIZUMAB
     Dosage: POWDER AND SOLVENT FOR SOLUTION FOR INJECTION
     Route: 058
     Dates: start: 20160519
  8. SPIRIVA [Concomitant]
     Active Substance: TIOTROPIUM BROMIDE MONOHYDRATE
     Indication: PRODUCT USED FOR UNKNOWN INDICATION
     Route: 065
  9. INNOVAIR [Concomitant]
     Active Substance: BECLOMETHASONE DIPROPIONATE\FORMOTEROL
     Indication: PRODUCT USED FOR UNKNOWN INDICATION
     Dosage: 100/6 MG
     Route: 065
  10. EBASTINE [Concomitant]
     Active Substance: EBASTINE
     Indication: PRODUCT USED FOR UNKNOWN INDICATION
     Dosage: 10 MG
     Route: 065
  11. METFORMIN [Concomitant]
     Active Substance: METFORMIN HYDROCHLORIDE
     Indication: PRODUCT USED FOR UNKNOWN INDICATION
     Dosage: 850 MG
     Route: 065
  12. XOLAIR [Suspect]
     Active Substance: OMALIZUMAB
     Dosage: POWDER AND SOLVENT FOR SOLUTION FOR INJECTION
     Route: 058
     Dates: start: 20151201
  13. HYDROCORTISONE. [Concomitant]
     Active Substance: HYDROCORTISONE
     Indication: PRODUCT USED FOR UNKNOWN INDICATION
     Dosage: 10 MG
     Route: 065
  14. AVAMYS [Concomitant]
     Active Substance: FLUTICASONE FUROATE
     Indication: PRODUCT USED FOR UNKNOWN INDICATION
     Dosage: 27 MG
     Route: 065

REACTIONS (9)
  - Dyspnoea [Unknown]
  - Heart rate increased [Unknown]
  - Nasal congestion [Unknown]
  - Ear infection [Unknown]
  - Sinusitis [Recovering/Resolving]
  - Pulmonary function test abnormal [Unknown]
  - Respiratory tract infection [Recovering/Resolving]
  - Feeling abnormal [Unknown]
  - Lower respiratory tract congestion [Unknown]

NARRATIVE: CASE EVENT DATE: 201510
